FAERS Safety Report 20173390 (Version 1)
Quarter: 2021Q4

REPORT INFORMATION
  Report Type: Spontaneous
  Country: DE (occurrence: DE)
  Receive Date: 20211211
  Receipt Date: 20211211
  Transmission Date: 20220304
  Serious: Yes (Hospitalization, Other)
  Sender: FDA-Public Use
  Company Number: DE-NOVARTISPH-NVSC2021DE282805

PATIENT
  Age: 57 Year
  Sex: Male

DRUGS (11)
  1. DEXAMETHASONE [Suspect]
     Active Substance: DEXAMETHASONE
     Indication: Colitis
     Dosage: UNK
     Route: 065
  2. PREDNISOLONE [Suspect]
     Active Substance: PREDNISOLONE
     Indication: Colitis
     Dosage: UNK
     Route: 065
  3. IPILIMUMAB [Suspect]
     Active Substance: IPILIMUMAB
     Indication: Malignant melanoma
     Dosage: 285 MG
     Route: 065
     Dates: start: 20191009, end: 20191227
  4. IPILIMUMAB [Suspect]
     Active Substance: IPILIMUMAB
     Dosage: 240 MG
     Route: 065
     Dates: start: 20191104
  5. IPILIMUMAB [Suspect]
     Active Substance: IPILIMUMAB
     Dosage: 255 MG
     Route: 065
     Dates: start: 20191206
  6. IPILIMUMAB [Suspect]
     Active Substance: IPILIMUMAB
     Dosage: 255 MG
     Route: 065
     Dates: start: 20191227
  7. NIVOLUMAB [Suspect]
     Active Substance: NIVOLUMAB
     Indication: Malignant melanoma
     Dosage: 95 MG
     Route: 065
     Dates: start: 20191009
  8. NIVOLUMAB [Suspect]
     Active Substance: NIVOLUMAB
     Dosage: 80 MG
     Route: 065
     Dates: start: 20191104
  9. NIVOLUMAB [Suspect]
     Active Substance: NIVOLUMAB
     Dosage: 85 MG
     Route: 065
     Dates: start: 20191206
  10. NIVOLUMAB [Suspect]
     Active Substance: NIVOLUMAB
     Dosage: 85 MG
     Route: 065
     Dates: start: 20191227
  11. NIVOLUMAB [Suspect]
     Active Substance: NIVOLUMAB
     Dosage: 240 MG, BIW (240 MILLIGRAM, Q2WK)
     Route: 042
     Dates: start: 20200429, end: 20200708

REACTIONS (3)
  - Ulcerative keratitis [Not Recovered/Not Resolved]
  - Uveitis [Not Recovered/Not Resolved]
  - Cataract [Not Recovered/Not Resolved]

NARRATIVE: CASE EVENT DATE: 20200101
